FAERS Safety Report 7945504-X (Version None)
Quarter: 2011Q4

REPORT INFORMATION
  Report Type: 
  Country: None (occurrence: None)
  Receive Date: 20111129
  Receipt Date: 20111116
  Transmission Date: 20120403
  Serious: Yes (Hospitalization, Other)
  Sender: FDA-Public Use
  Company Number: JP-PFIZER INC-2011013380

PATIENT
  Age: 85 Year
  Sex: Male

DRUGS (9)
  1. FUROSEMIDE [Suspect]
     Indication: DIURETIC THERAPY
     Dosage: 20 MG, UNK
     Route: 048
     Dates: start: 20091201
  2. DONEPEZIL [Concomitant]
  3. FAMOTIDINE [Concomitant]
  4. AMIODARONE HCL [Suspect]
     Indication: VENTRICULAR TACHYCARDIA
     Dosage: 200 MG, UNK
     Route: 048
     Dates: start: 20060301, end: 20060601
  5. SPIRONOLACTONE [Suspect]
     Indication: DIURETIC THERAPY
     Dosage: 25 MG, UNK
     Route: 065
  6. ALLOPURINOL [Concomitant]
  7. AMIODARONE HCL [Suspect]
     Dosage: 200 MG
     Route: 048
     Dates: start: 20090401, end: 20100101
  8. WARFARIN [Concomitant]
     Indication: ANTICOAGULANT THERAPY
     Dosage: UNK
  9. AMIODARONE HCL [Suspect]
     Dosage: 100 MG, UNK
     Route: 048
     Dates: start: 20060601, end: 20090401

REACTIONS (2)
  - LIVER DISORDER [None]
  - DEHYDRATION [None]
